FAERS Safety Report 7387179-7 (Version None)
Quarter: 2011Q1

REPORT INFORMATION
  Report Type: 
  Country: None (occurrence: None)
  Receive Date: 20110331
  Receipt Date: 20110321
  Transmission Date: 20110831
  Serious: Yes (Hospitalization)
  Sender: FDA-Public Use
  Company Number: B0707183A

PATIENT
  Sex: Female

DRUGS (1)
  1. ZINNAT [Suspect]
     Route: 061
     Dates: start: 20050101

REACTIONS (5)
  - DRUG HYPERSENSITIVITY [None]
  - MALAISE [None]
  - VOMITING [None]
  - PRURIGO [None]
  - LOCALISED OEDEMA [None]
